FAERS Safety Report 25307785 (Version 1)
Quarter: 2025Q2

REPORT INFORMATION
  Report Type: Spontaneous
  Country: DE (occurrence: DE)
  Receive Date: 20250513
  Receipt Date: 20250513
  Transmission Date: 20250717
  Serious: Yes (Congenital Anomaly)
  Sender: MYLAN
  Company Number: DE-EMB-M202101371-1

PATIENT
  Sex: Male
  Weight: 3.04 kg

DRUGS (24)
  1. ZIPRASIDONE [Suspect]
     Active Substance: ZIPRASIDONE
     Indication: Schizophrenia
     Dosage: 40 MILLIGRAM, QD
     Dates: start: 202012, end: 202109
  2. ZIPRASIDONE [Suspect]
     Active Substance: ZIPRASIDONE
     Dosage: 40 MILLIGRAM, QD
     Dates: start: 202012, end: 202109
  3. ZIPRASIDONE [Suspect]
     Active Substance: ZIPRASIDONE
     Dosage: 40 MILLIGRAM, QD
     Route: 064
     Dates: start: 202012, end: 202109
  4. ZIPRASIDONE [Suspect]
     Active Substance: ZIPRASIDONE
     Dosage: 40 MILLIGRAM, QD
     Route: 064
     Dates: start: 202012, end: 202109
  5. ZIPRASIDONE [Suspect]
     Active Substance: ZIPRASIDONE
     Dosage: 40 MILLIGRAM, QD
     Dates: start: 202012, end: 202109
  6. ZIPRASIDONE [Suspect]
     Active Substance: ZIPRASIDONE
     Dosage: 40 MILLIGRAM, QD
     Dates: start: 202012, end: 202109
  7. ZIPRASIDONE [Suspect]
     Active Substance: ZIPRASIDONE
     Dosage: 40 MILLIGRAM, QD
     Route: 064
     Dates: start: 202012, end: 202109
  8. ZIPRASIDONE [Suspect]
     Active Substance: ZIPRASIDONE
     Dosage: 40 MILLIGRAM, QD
     Route: 064
     Dates: start: 202012, end: 202109
  9. BOOSTRIX [Concomitant]
     Active Substance: TETANUS TOXOID, REDUCED DIPHTHERIA TOXOID AND ACELLULAR PERTUSSIS VACCINE, ADSORBED ANTIGENS
     Indication: Immunisation
     Dosage: QD
     Dates: start: 202107, end: 202107
  10. BOOSTRIX [Concomitant]
     Active Substance: TETANUS TOXOID, REDUCED DIPHTHERIA TOXOID AND ACELLULAR PERTUSSIS VACCINE, ADSORBED ANTIGENS
     Dosage: QD
     Dates: start: 202107, end: 202107
  11. BOOSTRIX [Concomitant]
     Active Substance: TETANUS TOXOID, REDUCED DIPHTHERIA TOXOID AND ACELLULAR PERTUSSIS VACCINE, ADSORBED ANTIGENS
     Dosage: QD
     Route: 064
     Dates: start: 202107, end: 202107
  12. BOOSTRIX [Concomitant]
     Active Substance: TETANUS TOXOID, REDUCED DIPHTHERIA TOXOID AND ACELLULAR PERTUSSIS VACCINE, ADSORBED ANTIGENS
     Dosage: QD
     Route: 064
     Dates: start: 202107, end: 202107
  13. BOOSTRIX [Concomitant]
     Active Substance: TETANUS TOXOID, REDUCED DIPHTHERIA TOXOID AND ACELLULAR PERTUSSIS VACCINE, ADSORBED ANTIGENS
     Dosage: QD
     Dates: start: 202107, end: 202107
  14. BOOSTRIX [Concomitant]
     Active Substance: TETANUS TOXOID, REDUCED DIPHTHERIA TOXOID AND ACELLULAR PERTUSSIS VACCINE, ADSORBED ANTIGENS
     Dosage: QD
     Dates: start: 202107, end: 202107
  15. BOOSTRIX [Concomitant]
     Active Substance: TETANUS TOXOID, REDUCED DIPHTHERIA TOXOID AND ACELLULAR PERTUSSIS VACCINE, ADSORBED ANTIGENS
     Dosage: QD
     Route: 064
     Dates: start: 202107, end: 202107
  16. BOOSTRIX [Concomitant]
     Active Substance: TETANUS TOXOID, REDUCED DIPHTHERIA TOXOID AND ACELLULAR PERTUSSIS VACCINE, ADSORBED ANTIGENS
     Dosage: QD
     Route: 064
     Dates: start: 202107, end: 202107
  17. BUTYLSCOPOLAMINE BROMIDE [Concomitant]
     Active Substance: BUTYLSCOPOLAMINE BROMIDE
     Indication: Labour pain
  18. BUTYLSCOPOLAMINE BROMIDE [Concomitant]
     Active Substance: BUTYLSCOPOLAMINE BROMIDE
  19. BUTYLSCOPOLAMINE BROMIDE [Concomitant]
     Active Substance: BUTYLSCOPOLAMINE BROMIDE
     Route: 064
  20. BUTYLSCOPOLAMINE BROMIDE [Concomitant]
     Active Substance: BUTYLSCOPOLAMINE BROMIDE
     Route: 064
  21. BUTYLSCOPOLAMINE BROMIDE [Concomitant]
     Active Substance: BUTYLSCOPOLAMINE BROMIDE
  22. BUTYLSCOPOLAMINE BROMIDE [Concomitant]
     Active Substance: BUTYLSCOPOLAMINE BROMIDE
  23. BUTYLSCOPOLAMINE BROMIDE [Concomitant]
     Active Substance: BUTYLSCOPOLAMINE BROMIDE
     Route: 064
  24. BUTYLSCOPOLAMINE BROMIDE [Concomitant]
     Active Substance: BUTYLSCOPOLAMINE BROMIDE
     Route: 064

REACTIONS (2)
  - Pulmonary artery stenosis congenital [Recovering/Resolving]
  - Foetal exposure during pregnancy [Unknown]
